FAERS Safety Report 4551842-3 (Version None)
Quarter: 2005Q1

REPORT INFORMATION
  Report Type: 
  Country: None (occurrence: None)
  Receive Date: 20050111
  Receipt Date: 20041223
  Transmission Date: 20050727
  Serious: Yes (Hospitalization)
  Sender: FDA-Public Use
  Company Number: CIP04002758

PATIENT
  Age: 81 Year
  Sex: Male

DRUGS (7)
  1. FURADANTIN [Suspect]
     Indication: URINARY TRACT INFECTION BACTERIAL
     Dosage: 1 CAPSUL DAILY ORAL
     Route: 048
     Dates: start: 20041021, end: 20041125
  2. PREVISCAN (FLUIDIONE) TABLET 20 MG [Suspect]
     Dosage: 1 TABLET DAILY ORAL
     Route: 048
     Dates: start: 20040929, end: 20041127
  3. ENALAPRIL MALEATE [Concomitant]
  4. VACCINES [Concomitant]
  5. ZOCOR [Suspect]
     Dosage: ORAL
     Route: 048
     Dates: start: 20040915, end: 20041127
  6. XATRAL(ALFUZOSIN) [Suspect]
     Dosage: ORAL
     Route: 048
     Dates: end: 20041127
  7. NEURONTIN [Suspect]
     Indication: NEUROPATHY
     Dosage: ORAL
     Route: 048
     Dates: start: 19980615, end: 20041127

REACTIONS (10)
  - ANTIBODY TEST POSITIVE [None]
  - COMPLEMENT FACTOR INCREASED [None]
  - INFLAMMATION [None]
  - LEUKOCYTOCLASTIC VASCULITIS [None]
  - PAIN OF SKIN [None]
  - PULMONARY EMBOLISM [None]
  - STAPHYLOCOCCAL INFECTION [None]
  - URINARY TRACT INFECTION [None]
  - VASCULAR PURPURA [None]
  - VASCULITIS NECROTISING [None]
